FAERS Safety Report 9172513 (Version 2)
Quarter: 2013Q1

REPORT INFORMATION
  Report Type: Spontaneous
  Country: AU (occurrence: AU)
  Receive Date: 20130319
  Receipt Date: 20130328
  Transmission Date: 20140127
  Serious: Yes (Death, Other)
  Sender: FDA-Public Use
  Company Number: AU-B.I. PHARMACEUTICALS,INC./RIDGEFIELD-2013-AU-00306AU

PATIENT
  Age: 83 None
  Sex: Female
  Weight: 60 kg

DRUGS (7)
  1. PRADAXA [Suspect]
     Indication: CEREBROVASCULAR ACCIDENT PROPHYLAXIS
     Dosage: 220 MG
     Dates: start: 20110727, end: 20130312
  2. PRADAXA [Suspect]
     Indication: ATRIAL FIBRILLATION
  3. LASIX [Concomitant]
     Dosage: 40 MG
     Dates: start: 20130129
  4. LIPITOR [Concomitant]
     Dosage: 40 MG
     Dates: start: 20120802
  5. PARIET [Concomitant]
     Dosage: 20 MG
     Dates: start: 20100512
  6. VENTOLIN [Concomitant]
     Dates: start: 20100702
  7. PANADOL OSTEO [Concomitant]
     Dates: start: 20120404

REACTIONS (4)
  - Cerebral infarction [Fatal]
  - Hemiplegia [Unknown]
  - Loss of consciousness [Unknown]
  - Abnormal behaviour [Unknown]
